FAERS Safety Report 9697320 (Version 1)
Quarter: 2013Q4

REPORT INFORMATION
  Report Type: Spontaneous
  Country: US (occurrence: None)
  Receive Date: 20131119
  Receipt Date: 20131119
  Transmission Date: 20140711
  Serious: No
  Sender: FDA-Public Use
  Company Number: None

PATIENT
  Age: 72 Year
  Sex: Male
  Weight: 133.6 kg

DRUGS (1)
  1. MOXIFLOXACIN [Suspect]
     Route: 048
     Dates: start: 20130813, end: 20130815

REACTIONS (1)
  - Respiratory distress [None]
